FAERS Safety Report 13691760 (Version 1)
Quarter: 2017Q2

REPORT INFORMATION
  Report Type: Spontaneous
  Country: US (occurrence: US)
  Receive Date: 20170626
  Receipt Date: 20170626
  Transmission Date: 20170830
  Serious: No
  Sender: FDA-Public Use
  Company Number: US-PFIZER INC-2017275059

PATIENT
  Age: 8 Year
  Sex: Female

DRUGS (6)
  1. DULCOLAX NOS [Concomitant]
     Active Substance: BISACODYL OR DOCUSATE SODIUM
     Dosage: 10 MG, 1X/DAY (2 TABLET AS DIRECTED)
     Route: 048
  2. ENEMA (SODIUM PHOSPHATE, DIBASIC\SODIUM PHOSPHATE, MONOBASIC) [Concomitant]
     Active Substance: SODIUM PHOSPHATE, DIBASIC\SODIUM PHOSPHATE, MONOBASIC
     Dosage: UNK UNK, 2X/DAY (AS DIRECTED)
     Route: 054
  3. LEVOTHYROXINE SODIUM. [Suspect]
     Active Substance: LEVOTHYROXINE SODIUM
     Dosage: 50 UG, 1X/DAY (1 TAB DAILY GIVEN ON EMPTY STOMACH FIRST THING IN THE MORNING)
     Route: 048
  4. MIRALAX [Concomitant]
     Active Substance: POLYETHYLENE GLYCOL 3350
     Dosage: UNK, 1X/DAY (17 GM POWDER 238 GM FOR CLEAN OUT AS DIRECTED)
     Route: 048
  5. MIRALAX [Concomitant]
     Active Substance: POLYETHYLENE GLYCOL 3350
     Dosage: UNK UNK, 1X/DAY (17 GM POWDER 1/2 A CAPFUL AS DIRECTED )
     Route: 048
  6. GENOTROPIN [Suspect]
     Active Substance: SOMATROPIN
     Indication: GROWTH HORMONE DEFICIENCY
     Dosage: 0.9 MG, DAILY
     Route: 058
     Dates: start: 20160523

REACTIONS (4)
  - Loose tooth [Unknown]
  - Drug dose omission [Unknown]
  - Vomiting [Unknown]
  - Anosmia [Unknown]
